FAERS Safety Report 10242050 (Version 1)
Quarter: 2014Q2

REPORT INFORMATION
  Report Type: Spontaneous
  Country: GB (occurrence: GB)
  Receive Date: 20140617
  Receipt Date: 20140617
  Transmission Date: 20141212
  Serious: Yes (Other)
  Sender: FDA-Public Use
  Company Number: PHHY2014GB070364

PATIENT
  Age: 67 Year
  Sex: Female
  Weight: 76 kg

DRUGS (2)
  1. DOXAZOSIN MESYLATE [Suspect]
     Indication: HYPERTENSION
     Dosage: 8 MG, 1X/DAY
     Route: 048
     Dates: start: 2007
  2. GAVISCON [Concomitant]
     Indication: DYSPEPSIA
     Route: 048
     Dates: start: 20140227

REACTIONS (3)
  - Choking [Not Recovered/Not Resolved]
  - Dysphagia [Not Recovered/Not Resolved]
  - Retching [Not Recovered/Not Resolved]
